FAERS Safety Report 4464891-0 (Version None)
Quarter: 2004Q4

REPORT INFORMATION
  Report Type: 
  Country: None (occurrence: None)
  Receive Date: 20041004
  Receipt Date: 20040123
  Transmission Date: 20050328
  Serious: No
  Sender: FDA-Public Use
  Company Number: 359454

PATIENT
  Age: 62 Year
  Sex: Female

DRUGS (7)
  1. COREG [Suspect]
     Indication: HYPERTENSION
     Dosage: 12.5MG TWICE PER DAY
     Route: 048
     Dates: start: 20010301
  2. FLOVENT [Suspect]
     Indication: ILL-DEFINED DISORDER
     Route: 055
     Dates: start: 20031101
  3. PULMICORT [Suspect]
     Route: 055
  4. PREMARIN [Concomitant]
  5. LEVOTHROID [Concomitant]
  6. ALLEGRA [Concomitant]
  7. ALBUTEROL [Concomitant]

REACTIONS (8)
  - APHONIA [None]
  - ASTHENIA [None]
  - BRONCHOSPASM [None]
  - CHEST DISCOMFORT [None]
  - CHEST PAIN [None]
  - COUGH [None]
  - HEADACHE [None]
  - THROAT IRRITATION [None]
